FAERS Safety Report 5115139-5 (Version None)
Quarter: 2006Q3

REPORT INFORMATION
  Report Type: 
  Country: None (occurrence: None)
  Receive Date: 20060922
  Receipt Date: 20060914
  Transmission Date: 20061208
  Serious: Yes (Life-Threatening, Hospitalization, Other)
  Sender: FDA-Public Use
  Company Number: 2006111378

PATIENT
  Age: 78 Year
  Sex: Male
  Weight: 88.4514 kg

DRUGS (6)
  1. LIPITOR [Suspect]
     Indication: BLOOD CHOLESTEROL
     Dosage: 10 MG (10 MG, 1 IN 1D)
     Dates: start: 20030101, end: 20060909
  2. ASPIRIN [Concomitant]
  3. LISINOPRIL [Suspect]
  4. METOPROLOL (METOPROLOL) [Concomitant]
  5. IRON (IRON) [Concomitant]
  6. WARFARIN SODIUM [Concomitant]

REACTIONS (2)
  - ANAL HAEMORRHAGE [None]
  - CARDIAC OPERATION [None]
